FAERS Safety Report 11926134 (Version 4)
Quarter: 2016Q2

REPORT INFORMATION
  Report Type: Report from Study
  Country: CA (occurrence: CA)
  Receive Date: 20160119
  Receipt Date: 20160531
  Transmission Date: 20160815
  Serious: Yes (Hospitalization, Other)
  Sender: FDA-Public Use
  Company Number: CA-BRISTOL-MYERS SQUIBB COMPANY-BMS-2016-000525

PATIENT
  Age: 89 Year
  Sex: Male

DRUGS (4)
  1. PLAQUENIL                          /00072602/ [Concomitant]
     Active Substance: HYDROXYCHLOROQUINE DIPHOSPHATE
     Indication: PRODUCT USED FOR UNKNOWN INDICATION
     Route: 065
  2. METHOTREXATE [Concomitant]
     Active Substance: METHOTREXATE
     Indication: PRODUCT USED FOR UNKNOWN INDICATION
     Route: 065
  3. ENBREL [Concomitant]
     Active Substance: ETANERCEPT
     Indication: PRODUCT USED FOR UNKNOWN INDICATION
     Route: 065
  4. ABATACEPT [Suspect]
     Active Substance: ABATACEPT
     Indication: RHEUMATOID ARTHRITIS
     Dosage: 750 MG, Q4WK
     Route: 042
     Dates: start: 20130823

REACTIONS (16)
  - Arthralgia [Unknown]
  - Insomnia [Unknown]
  - Ecchymosis [Unknown]
  - Pain [Unknown]
  - Anxiety [Unknown]
  - Feeling cold [Unknown]
  - Cerebrovascular accident [Unknown]
  - Confusional state [Unknown]
  - Back pain [Unknown]
  - Malaise [Unknown]
  - Night sweats [Unknown]
  - Depression [Unknown]
  - Dizziness [Unknown]
  - Concussion [Unknown]
  - Fall [Unknown]
  - Amnesia [Unknown]

NARRATIVE: CASE EVENT DATE: 20160101
